FAERS Safety Report 4426268-3 (Version None)
Quarter: 2004Q3

REPORT INFORMATION
  Report Type: 
  Country: None (occurrence: None)
  Receive Date: 20040811
  Receipt Date: 20040802
  Transmission Date: 20050211
  Serious: Yes (Hospitalization, Other)
  Sender: FDA-Public Use
  Company Number: HQWYE739303AUG04

PATIENT
  Age: 14 Year
  Sex: Female

DRUGS (7)
  1. ADVIL [Suspect]
     Dosage: 50 TABLETS
     Route: 048
     Dates: start: 20040411, end: 20040411
  2. DEXTROPROPOXYPHENE/PARACETAMOL (DEXTROPROPOXYPHENE/PARACETAMOL, ) [Suspect]
     Dosage: 20 TABLET
     Route: 048
     Dates: start: 20040411, end: 20040411
  3. DOLIPRANE (PARACETAMOL, ) [Suspect]
     Dosage: 19 TABLETS
     Route: 048
     Dates: start: 20040411, end: 20040411
  4. LEXOMIL (BROMAZEPAM, ) [Suspect]
     Dosage: 2, 12 MG TABLETS
     Route: 048
     Dates: start: 20040411, end: 20040411
  5. OROPIVALONE (BACITRACIN ZINC/CHLORMETHINE HYDROCHLORIDE/PENTOSAN POLYS [Suspect]
     Route: 048
     Dates: start: 20040411, end: 20040411
  6. STILNOX (ZOLPIDEM, ) [Suspect]
     Dosage: 14, 10 MG TABLETS
     Route: 048
     Dates: start: 20040411, end: 20040411
  7. ISOTRETINOIN [Concomitant]

REACTIONS (5)
  - HYPOKALAEMIA [None]
  - MULTIPLE DRUG OVERDOSE INTENTIONAL [None]
  - SOMNOLENCE [None]
  - SUICIDE ATTEMPT [None]
  - VOMITING [None]
